FAERS Safety Report 26074739 (Version 1)
Quarter: 2025Q4

REPORT INFORMATION
  Report Type: Spontaneous
  Country: CA (occurrence: CA)
  Receive Date: 20251121
  Receipt Date: 20251121
  Transmission Date: 20260118
  Serious: Yes (Death, Life-Threatening, Hospitalization, Disabling, Other)
  Sender: Haleon PLC
  Company Number: CA-HALEON-2275194

PATIENT
  Age: 44 Year
  Sex: Female
  Weight: 97 kg

DRUGS (29)
  1. ADVIL [Suspect]
     Active Substance: IBUPROFEN
     Indication: Product used for unknown indication
  2. ASACOL [Suspect]
     Active Substance: MESALAMINE
     Indication: Crohn^s disease
     Dosage: TABLET (ENTERIC-COATED)
  3. BORAGE OIL [Suspect]
     Active Substance: BORAGE OIL
     Indication: Product used for unknown indication
  4. ERGOCALCIFEROL [Suspect]
     Active Substance: ERGOCALCIFEROL
     Indication: Rheumatoid arthritis
  5. HYDROCORTISONE PROBUTATE [Suspect]
     Active Substance: HYDROCORTISONE PROBUTATE
     Indication: Rheumatoid arthritis
  6. MYCOPHENOLATE MOFETIL [Suspect]
     Active Substance: MYCOPHENOLATE MOFETIL
     Indication: Rheumatoid arthritis
  7. MYCOPHENOLATE MOFETIL [Suspect]
     Active Substance: MYCOPHENOLATE MOFETIL
  8. INFLIXIMAB [Suspect]
     Active Substance: INFLIXIMAB
     Indication: Product used for unknown indication
     Dosage: POWDER FOR ?SOLUTION ?INTRAVENOUS
  9. CALCIUM\CHOLECALCIFEROL [Suspect]
     Active Substance: CALCIUM\CHOLECALCIFEROL
     Indication: Rheumatoid arthritis
  10. CODEINE [Suspect]
     Active Substance: CODEINE
     Indication: Product used for unknown indication
  11. CODEINE [Suspect]
     Active Substance: CODEINE
     Indication: Rheumatoid arthritis
  12. COSENTYX [Suspect]
     Active Substance: SECUKINUMAB
     Indication: Rheumatoid arthritis
  13. COSENTYX [Suspect]
     Active Substance: SECUKINUMAB
     Indication: Psoriatic arthropathy
  14. COSENTYX [Suspect]
     Active Substance: SECUKINUMAB
  15. COSENTYX [Suspect]
     Active Substance: SECUKINUMAB
  16. GRAMICIDIN\POLYMYXIN B [Suspect]
     Active Substance: GRAMICIDIN\POLYMYXIN B
     Indication: Product used for unknown indication
  17. HYDROXYCHLOROQUINE SULFATE [Suspect]
     Active Substance: HYDROXYCHLOROQUINE SULFATE
     Indication: Systemic lupus erythematosus
  18. HYDROXYCHLOROQUINE SULFATE [Suspect]
     Active Substance: HYDROXYCHLOROQUINE SULFATE
     Indication: Rheumatoid arthritis
  19. MOXIFLOXACIN [Suspect]
     Active Substance: MOXIFLOXACIN
     Indication: Product used for unknown indication
  20. QUETIAPINE FUMARATE [Suspect]
     Active Substance: QUETIAPINE FUMARATE
     Indication: Product used for unknown indication
  21. TYLENOL [Suspect]
     Active Substance: ACETAMINOPHEN
     Indication: Rheumatoid arthritis
  22. VITAMIN B12 [Suspect]
     Active Substance: CYANOCOBALAMIN
     Indication: Product used for unknown indication
  23. LANSOPRAZOLE [Concomitant]
     Active Substance: LANSOPRAZOLE
     Indication: Product used for unknown indication
     Dosage: CAPSULE, DELAYED RELEASE
  24. ASCORBIC ACID VITAMIN B NOS [Concomitant]
     Indication: Product used for unknown indication
  25. PREVACID [Concomitant]
     Active Substance: LANSOPRAZOLE
     Indication: Product used for unknown indication
  26. CHOLECALCIFEROL [Concomitant]
     Active Substance: CHOLECALCIFEROL
     Indication: Product used for unknown indication
  27. CODEINE [Concomitant]
     Active Substance: CODEINE
     Indication: Product used for unknown indication
  28. VITAMIN D3 [Concomitant]
     Active Substance: CHOLECALCIFEROL
     Indication: Product used for unknown indication
  29. PANTOPRAZOLE SODIUM ANHYDROUS [Concomitant]
     Active Substance: PANTOPRAZOLE SODIUM ANHYDROUS
     Indication: Product used for unknown indication

REACTIONS (45)
  - Liver injury [Fatal]
  - C-reactive protein abnormal [Fatal]
  - Diarrhoea [Fatal]
  - Treatment failure [Fatal]
  - Hypertension [Fatal]
  - Osteoarthritis [Fatal]
  - Rheumatoid factor positive [Fatal]
  - Breast cancer stage III [Fatal]
  - Bursitis [Fatal]
  - General physical health deterioration [Fatal]
  - Paraesthesia [Fatal]
  - Headache [Fatal]
  - Dry mouth [Fatal]
  - Depression [Fatal]
  - Psoriatic arthropathy [Fatal]
  - Frequent bowel movements [Fatal]
  - Prescribed overdose [Fatal]
  - Chest pain [Fatal]
  - Obesity [Fatal]
  - Lung disorder [Fatal]
  - Road traffic accident [Fatal]
  - Arthritis [Fatal]
  - Delirium [Fatal]
  - Liver disorder [Fatal]
  - Muscle spasms [Fatal]
  - Musculoskeletal pain [Fatal]
  - Therapy non-responder [Fatal]
  - Amnesia [Fatal]
  - Adjustment disorder with depressed mood [Fatal]
  - Peripheral venous disease [Fatal]
  - Hypoaesthesia [Fatal]
  - Malaise [Fatal]
  - Drug hypersensitivity [Fatal]
  - Dizziness [Fatal]
  - Lower limb fracture [Fatal]
  - Mobility decreased [Fatal]
  - Condition aggravated [Fatal]
  - Infection [Fatal]
  - Abdominal pain upper [Fatal]
  - Feeling hot [Fatal]
  - Colitis ulcerative [Fatal]
  - Blood cholesterol increased [Fatal]
  - Asthenia [Fatal]
  - Oedema [Fatal]
  - Sciatica [Fatal]
